FAERS Safety Report 17872282 (Version 1)
Quarter: 2020Q2

REPORT INFORMATION
  Report Type: Report from Study
  Country: US (occurrence: US)
  Receive Date: 20200608
  Receipt Date: 20200608
  Transmission Date: 20200714
  Serious: No
  Sender: FDA-Public Use
  Company Number: NVSC2020US153774

PATIENT
  Sex: Female

DRUGS (1)
  1. TABRECTA [Suspect]
     Active Substance: CAPMATINIB
     Indication: NON-SMALL CELL LUNG CANCER
     Dosage: UNK
     Route: 065

REACTIONS (6)
  - Swelling face [Unknown]
  - Peripheral swelling [Unknown]
  - Incorrect dose administered [Unknown]
  - Dizziness [Unknown]
  - Nausea [Unknown]
  - Hyperhidrosis [Unknown]
